FAERS Safety Report 26156896 (Version 1)
Quarter: 2025Q4

REPORT INFORMATION
  Report Type: Spontaneous
  Country: US (occurrence: US)
  Receive Date: 20251215
  Receipt Date: 20251215
  Transmission Date: 20260118
  Serious: No
  Sender: ALCON
  Company Number: US-ALCON LABORATORIES-ALC2025US006857

PATIENT
  Age: 94 Year
  Sex: Female

DRUGS (3)
  1. ACOLTREMON [Suspect]
     Active Substance: ACOLTREMON
     Indication: Product used for unknown indication
     Dosage: ONE DROP INTO BOTH EYES TWO TIMES A DAY, MORNING AND EVENING
     Route: 047
  2. GABAPENTIN [Concomitant]
     Active Substance: GABAPENTIN
     Indication: Product used for unknown indication
     Route: 065
  3. IPRATROPIUM BROMIDE [Concomitant]
     Active Substance: IPRATROPIUM BROMIDE
     Indication: Product used for unknown indication
     Route: 045

REACTIONS (2)
  - Lacrimation increased [Recovered/Resolved]
  - Rhinorrhoea [Recovered/Resolved]
